FAERS Safety Report 4649385-1 (Version None)
Quarter: 2005Q2

REPORT INFORMATION
  Report Type: 
  Country: None (occurrence: None)
  Receive Date: 20050427
  Receipt Date: 20050412
  Transmission Date: 20051028
  Serious: No
  Sender: FDA-Public Use
  Company Number: A01200502413

PATIENT
  Age: 54 Year
  Sex: Male

DRUGS (6)
  1. PLAVIX [Suspect]
     Indication: ANGIOPLASTY
     Dosage: 75 MG OD ORAL
     Route: 048
     Dates: start: 20020101
  2. PLAVIX [Suspect]
     Indication: STENT PLACEMENT
     Dosage: 75 MG OD ORAL
     Route: 048
     Dates: start: 20020101
  3. BETA-BLOKERS [Concomitant]
  4. VITAMINS [Concomitant]
  5. ACETYLSALICYLIC ACID SRT [Concomitant]
  6. ANTI-HYPERLIPIDEMIC DRUGS [Concomitant]

REACTIONS (4)
  - DYSARTHRIA [None]
  - EYE IRRITATION [None]
  - MYASTHENIC SYNDROME [None]
  - THROAT IRRITATION [None]
